FAERS Safety Report 10010044 (Version 1)
Quarter: 2014Q1

REPORT INFORMATION
  Report Type: Spontaneous
  Country: US (occurrence: US)
  Receive Date: 20140312
  Receipt Date: 20140312
  Transmission Date: 20141002
  Serious: No
  Sender: FDA-Public Use
  Company Number: US-INCYTE CORPORATION-2013IN000890

PATIENT
  Age: 52 Year
  Sex: Female

DRUGS (1)
  1. JAKAFI [Suspect]
     Indication: MYELOFIBROSIS
     Dosage: 5 MG, ONCE DAILY TUESDAY, THURSDAY, SATURDAY AND SUNDAY AND BID ON MONDAY, WEDNESDAY AND FRIDAY
     Route: 048
     Dates: start: 20130408

REACTIONS (3)
  - Increased appetite [Unknown]
  - Pollakiuria [Unknown]
  - Constipation [Unknown]
